FAERS Safety Report 7289286-6 (Version None)
Quarter: 2011Q1

REPORT INFORMATION
  Report Type: 
  Country: None (occurrence: None)
  Receive Date: 20110211
  Receipt Date: 20110208
  Transmission Date: 20110831
  Serious: Yes (Life-Threatening)
  Sender: FDA-Public Use
  Company Number: IT-PFIZER INC-2010145433

PATIENT
  Age: 37 Year
  Sex: Female

DRUGS (7)
  1. VERBENA HERB [Concomitant]
     Dosage: 200 ML, AS NEEDED IN PM
  2. ZOFRAN [Concomitant]
     Dosage: 40 MG/20ML
  3. VITAMIN B [Concomitant]
     Dosage: 1 TABLET, AS NEEDED
  4. ASCORBIC ACID [Concomitant]
     Dosage: 1 TABLET, AS NEEDED
  5. VITAMIN E [Concomitant]
     Dosage: 1 TABLET, AS NEEDED
  6. SOLU-MEDROL [Suspect]
     Indication: MULTIPLE SCLEROSIS
     Dosage: 1 G/16 ML
     Route: 042
     Dates: start: 20101028
  7. ENDOXAN [Concomitant]
     Dosage: 1 G, UNK

REACTIONS (5)
  - BRADYCARDIA [None]
  - LARYNGEAL OEDEMA [None]
  - HYPOTENSION [None]
  - RASH [None]
  - GLOSSITIS [None]
